FAERS Safety Report 8454846-3 (Version None)
Quarter: 2012Q2

REPORT INFORMATION
  Report Type: 
  Country: None (occurrence: None)
  Receive Date: 20120621
  Receipt Date: 20120611
  Transmission Date: 20120825
  Serious: Yes (Hospitalization)
  Sender: FDA-Public Use
  Company Number: FI-JNJFOC-20120605772

PATIENT
  Age: 7 Decade
  Sex: Male

DRUGS (1)
  1. CONCERTA [Suspect]
     Indication: ATTENTION DEFICIT/HYPERACTIVITY DISORDER
     Route: 048

REACTIONS (5)
  - BRONCHITIS CHRONIC [None]
  - ASTHMA [None]
  - PNEUMONIA [None]
  - LACRIMATION INCREASED [None]
  - DRY EYE [None]
